FAERS Safety Report 5629937-2 (Version None)
Quarter: 2008Q1

REPORT INFORMATION
  Report Type: 
  Country: None (occurrence: None)
  Receive Date: 20080218
  Receipt Date: 20080206
  Transmission Date: 20080703
  Serious: Yes (Other)
  Sender: FDA-Public Use
  Company Number: AU-ROCHE-542398

PATIENT
  Age: 80 Year
  Sex: Male
  Weight: 55 kg

DRUGS (5)
  1. OSELTAMIVIR [Suspect]
     Route: 048
     Dates: start: 20070704, end: 20070710
  2. AMITRIPTYLINE HCL [Suspect]
     Dosage: DRUG NAME REPORTED AS ^AMITRIPTILINE^
     Route: 065
     Dates: start: 20070707, end: 20070710
  3. SERTRALINE [Concomitant]
     Dates: end: 20070703
  4. ASPIRIN [Concomitant]
     Dates: end: 20070713
  5. PLAVIX [Concomitant]
     Dates: start: 20070713

REACTIONS (2)
  - DELIRIUM [None]
  - NEUROLOGICAL SYMPTOM [None]
